FAERS Safety Report 6688590-X (Version None)
Quarter: 2010Q2

REPORT INFORMATION
  Report Type: 
  Country: None (occurrence: None)
  Receive Date: 20100420
  Receipt Date: 20100408
  Transmission Date: 20101027
  Serious: Yes (Other)
  Sender: FDA-Public Use
  Company Number: BG-PFIZER INC-2010044532

PATIENT
  Age: 65 Year

DRUGS (1)
  1. SUNITINIB MALATE [Suspect]
     Indication: METASTATIC RENAL CELL CARCINOMA
     Dosage: 50 MG, DAILY, 4 WEEKS ON, 2 WEEKS OFF
     Dates: start: 20080401, end: 20100101

REACTIONS (4)
  - ASTHENIA [None]
  - NAUSEA [None]
  - SKIN DISORDER [None]
  - VOMITING [None]
